FAERS Safety Report 6244028-8 (Version None)
Quarter: 2009Q2

REPORT INFORMATION
  Report Type: 
  Country: None (occurrence: None)
  Receive Date: 20090623
  Receipt Date: 20090615
  Transmission Date: 20091009
  Serious: Yes (Hospitalization)
  Sender: FDA-Public Use
  Company Number: 2009007302

PATIENT
  Sex: Female

DRUGS (2)
  1. TREANDA [Suspect]
     Dosage: (50 MG/M2), INTRAVENOUS (NOT OTHERWISE SPECIFIED)
     Route: 042
  2. RITUXIMAB (RITUXIMAB) [Suspect]
     Dosage: (500 MG/M2, Q 4-WKS), INTRAVENOUS
     Route: 042

REACTIONS (1)
  - DEEP VEIN THROMBOSIS [None]
